FAERS Safety Report 4295439-1 (Version None)
Quarter: 2004Q1

REPORT INFORMATION
  Report Type: 
  Country: None (occurrence: None)
  Receive Date: 20040216
  Receipt Date: 20010525
  Transmission Date: 20041129
  Serious: Yes (Hospitalization)
  Sender: FDA-Public Use
  Company Number: PL-ROCHE-261081

PATIENT
  Age: 56 Year
  Sex: Female
  Weight: 58 kg

DRUGS (3)
  1. PEG-INTERFERON ALFA 2A (RO 25-8310) [Suspect]
     Route: 058
     Dates: start: 20010315, end: 20020207
  2. RIBAVIRIN [Suspect]
     Route: 048
     Dates: start: 20010315, end: 20010713
  3. RIBAVIRIN [Suspect]
     Route: 048
     Dates: start: 20010814, end: 20020214

REACTIONS (1)
  - TONSILLITIS [None]
